FAERS Safety Report 19847631 (Version 4)
Quarter: 2021Q4

REPORT INFORMATION
  Report Type: Report from Study
  Country: GB (occurrence: GB)
  Receive Date: 20210917
  Receipt Date: 20211220
  Transmission Date: 20220303
  Serious: Yes (Other)
  Sender: FDA-Public Use
  Company Number: GB-SAMSUNG BIOEPIS-SB-2021-17506

PATIENT
  Age: 50 Year
  Sex: Female

DRUGS (1)
  1. IMRALDI [Suspect]
     Active Substance: ADALIMUMAB
     Indication: Ankylosing spondylitis
     Route: 058
     Dates: start: 20210622

REACTIONS (15)
  - Immunosuppression [Unknown]
  - Ankylosing spondylitis [Not Recovered/Not Resolved]
  - Sciatica [Unknown]
  - Loss of personal independence in daily activities [Unknown]
  - Mobility decreased [Unknown]
  - Poor quality sleep [Unknown]
  - Fatigue [Unknown]
  - Headache [Unknown]
  - Ear pain [Unknown]
  - Lymphadenopathy [Not Recovered/Not Resolved]
  - Axillary pain [Unknown]
  - Psoriasis [Not Recovered/Not Resolved]
  - Mass [Not Recovered/Not Resolved]
  - Adverse drug reaction [Unknown]
  - Therapeutic product effect incomplete [Unknown]
